FAERS Safety Report 24807665 (Version 2)
Quarter: 2025Q3

REPORT INFORMATION
  Report Type: Report from Study
  Country: US (occurrence: US)
  Receive Date: 20250105
  Receipt Date: 20250828
  Transmission Date: 20251020
  Serious: No
  Sender: SANOFI AVENTIS
  Company Number: US-SA-2025SA001104

PATIENT
  Age: 65 Year
  Sex: Female
  Weight: 88.18 kg

DRUGS (27)
  1. DUPILUMAB [Suspect]
     Active Substance: DUPILUMAB
     Indication: Dermatitis atopic
     Dosage: 300 MG, QOW
     Route: 058
     Dates: start: 20240412
  2. PREDNISONE [Concomitant]
     Active Substance: PREDNISONE
  3. ERYTHROMYCIN [Concomitant]
     Active Substance: ERYTHROMYCIN
  4. MONTELUKAST [Concomitant]
     Active Substance: MONTELUKAST
  5. HYDROCORTISONE [Concomitant]
     Active Substance: HYDROCORTISONE
  6. TRIAMCINOLONE ACETONIDE [Concomitant]
     Active Substance: TRIAMCINOLONE ACETONIDE
  7. AIRSUPRA [Concomitant]
     Active Substance: ALBUTEROL SULFATE\BUDESONIDE
  8. BRILINTA [Concomitant]
     Active Substance: TICAGRELOR
  9. HYDROXYZINE HYDROCHLORIDE [Concomitant]
     Active Substance: HYDROXYZINE HYDROCHLORIDE
  10. MYCOPHENOLIC ACID [Concomitant]
     Active Substance: MYCOPHENOLIC ACID
  11. OPZELURA [Concomitant]
     Active Substance: RUXOLITINIB PHOSPHATE
  12. ROSUVASTATIN CALCIUM [Concomitant]
     Active Substance: ROSUVASTATIN CALCIUM
  13. MIRTAZAPINE [Concomitant]
     Active Substance: MIRTAZAPINE
  14. METOPROLOL SUCCINATE [Concomitant]
     Active Substance: METOPROLOL SUCCINATE
  15. ALBUTEROL SULFATE [Concomitant]
     Active Substance: ALBUTEROL SULFATE
  16. CLOPIDOGREL [Concomitant]
     Active Substance: CLOPIDOGREL BISULFATE
  17. CLOBETASOL PROPIONATE [Concomitant]
     Active Substance: CLOBETASOL PROPIONATE
  18. AMITRIPTYLINE HYDROCHLORIDE [Concomitant]
     Active Substance: AMITRIPTYLINE HYDROCHLORIDE
  19. MICONAZOLE [Concomitant]
     Active Substance: MICONAZOLE
  20. LORATADINE [Concomitant]
     Active Substance: LORATADINE
  21. MUPIROCIN [Concomitant]
     Active Substance: MUPIROCIN
  22. CEPHALEXIN [Concomitant]
     Active Substance: CEPHALEXIN
  23. TACROLIMUS [Concomitant]
     Active Substance: TACROLIMUS
  24. ROSUVASTATIN [Concomitant]
     Active Substance: ROSUVASTATIN
  25. TRELEGY ELLIPTA [Concomitant]
     Active Substance: FLUTICASONE FUROATE\UMECLIDINIUM BROMIDE\VILANTEROL TRIFENATATE
  26. MYFORTIC [Concomitant]
     Active Substance: MYCOPHENOLATE SODIUM
  27. METOPROLOL [Concomitant]
     Active Substance: METOPROLOL

REACTIONS (2)
  - Illness [Unknown]
  - Weight increased [Unknown]
